FAERS Safety Report 6984790-X (Version None)
Quarter: 2010Q3

REPORT INFORMATION
  Report Type: 
  Country: None (occurrence: None)
  Receive Date: 20100914
  Receipt Date: 20100914
  Transmission Date: 20110219
  Serious: Yes (Other)
  Sender: FDA-Public Use
  Company Number: None

PATIENT
  Age: 31 Year
  Sex: Female

DRUGS (1)
  1. OMEPRAZOLE/SODIUM BICARBONATE [Suspect]
     Indication: GASTRITIS
     Dosage: TAKE 1 CAPSULE DAILY

REACTIONS (3)
  - DECREASED APPETITE [None]
  - NAUSEA [None]
  - PRODUCT SUBSTITUTION ISSUE [None]
